FAERS Safety Report 10563084 (Version 1)
Quarter: 2014Q4

REPORT INFORMATION
  Report Type: Spontaneous
  Country: US (occurrence: None)
  Receive Date: 20141103
  Receipt Date: 20141103
  Transmission Date: 20150529
  Serious: Yes (Hospitalization)
  Sender: FDA-Public Use
  Company Number: None

PATIENT
  Age: 19 Year
  Sex: Male

DRUGS (3)
  1. ADDERALL [Suspect]
     Active Substance: AMPHETAMINE ASPARTATE\AMPHETAMINE SULFATE\DEXTROAMPHETAMINE SACCHARATE\DEXTROAMPHETAMINE SULFATE
     Route: 048
     Dates: start: 20140830
  2. XANAX [Suspect]
     Active Substance: ALPRAZOLAM
  3. VICODIN [Suspect]
     Active Substance: ACETAMINOPHEN\HYDROCODONE BITARTRATE

REACTIONS (7)
  - Nausea [None]
  - Headache [None]
  - Diarrhoea [None]
  - Blood creatine phosphokinase increased [None]
  - Vomiting [None]
  - Hepatotoxicity [None]
  - Myalgia [None]

NARRATIVE: CASE EVENT DATE: 20140830
